FAERS Safety Report 4380065-6 (Version None)
Quarter: 2004Q2

REPORT INFORMATION
  Report Type: 
  Country: None (occurrence: None)
  Receive Date: 20040617
  Receipt Date: 20040607
  Transmission Date: 20050107
  Serious: Yes (Other)
  Sender: FDA-Public Use
  Company Number: GB-MERCK-0406GBR00063

PATIENT
  Age: 68 Year
  Sex: Male
  Weight: 99 kg

DRUGS (6)
  1. ALBUTEROL [Concomitant]
     Route: 055
     Dates: start: 20020101
  2. ASPIRIN [Concomitant]
     Indication: MYOCARDIAL ISCHAEMIA
     Route: 048
     Dates: start: 20010101
  3. CROMOLYN SODIUM [Concomitant]
     Route: 047
     Dates: start: 20020101
  4. ZETIA [Suspect]
     Indication: BLOOD CHOLESTEROL INCREASED
     Route: 048
     Dates: start: 20040302, end: 20040506
  5. FEXOFENADINE HYDROCHLORIDE [Concomitant]
     Indication: RHINITIS
     Route: 048
     Dates: start: 20010101
  6. NIFEDIPINE [Concomitant]
     Indication: BLOOD PRESSURE INCREASED
     Route: 048
     Dates: start: 20020515

REACTIONS (1)
  - BLOOD CREATINE PHOSPHOKINASE INCREASED [None]
